FAERS Safety Report 16872833 (Version 2)
Quarter: 2020Q3

REPORT INFORMATION
  Report Type: Spontaneous
  Country: PL (occurrence: PL)
  Receive Date: 20191001
  Receipt Date: 20200706
  Transmission Date: 20201102
  Serious: Yes (Hospitalization, Other)
  Sender: FDA-Public Use
  Company Number: PL-SYNTHON BV-IN51PV19_49193

PATIENT
  Age: 47 Year
  Sex: Female

DRUGS (17)
  1. DIPHENHYDRAMINE. [Suspect]
     Active Substance: DIPHENHYDRAMINE
     Indication: PRODUCT USED FOR UNKNOWN INDICATION
     Dosage: 12.5 MG/5 ML
     Route: 065
  2. HYDROXYZINE [Suspect]
     Active Substance: HYDROXYZINE HYDROCHLORIDE
     Dosage: 4 MILLIGRAM; UNKNOWN
  3. HYDROXYZINE [Suspect]
     Active Substance: HYDROXYZINE HYDROCHLORIDE
     Dosage: 10 DOSAGE FORM
     Route: 065
  4. FEXOFENADINE [Suspect]
     Active Substance: FEXOFENADINE HYDROCHLORIDE
     Indication: RHINITIS ALLERGIC
     Dosage: 30 DOSAGE FORM
     Route: 065
  5. CETIRIZINE [Suspect]
     Active Substance: CETIRIZINE HYDROCHLORIDE
     Indication: DRUG PROVOCATION TEST
     Dosage: 1 MILLIGRAM PER MILLILITRE,00884302
     Route: 048
  6. LEVOCETIRIZINE DIHYDROCHLORIDE. [Suspect]
     Active Substance: LEVOCETIRIZINE DIHYDROCHLORIDE
     Indication: DRUG PROVOCATION TEST
     Dosage: 2.5 MILLIGRAM PER MILLILITRE
     Route: 065
  7. LORATADINE. [Suspect]
     Active Substance: LORATADINE
     Indication: PHYSICAL EXAMINATION
     Dosage: 5 MILLIGRAM PER MILLILITRE
     Route: 065
  8. DIPHENHYDRAMINE. [Suspect]
     Active Substance: DIPHENHYDRAMINE
     Indication: DRUG PROVOCATION TEST
  9. HYDROXYZINE [Suspect]
     Active Substance: HYDROXYZINE HYDROCHLORIDE
     Indication: PRODUCT USED FOR UNKNOWN INDICATION
     Dosage: 2 MILLIGRAM; UNKNOWN
     Route: 065
  10. CETIRIZINE [Suspect]
     Active Substance: CETIRIZINE HYDROCHLORIDE
     Dosage: 1 DOSAGE FORM
     Route: 065
  11. FEXOFENADINE [Suspect]
     Active Substance: FEXOFENADINE HYDROCHLORIDE
     Indication: PRURITUS
     Dosage: 30 MILLIGRAM PER MILLILITRE
     Route: 065
  12. FEXOFENADINE [Suspect]
     Active Substance: FEXOFENADINE HYDROCHLORIDE
     Indication: DRUG PROVOCATION TEST
  13. LORATADINE. [Suspect]
     Active Substance: LORATADINE
     Indication: DRUG PROVOCATION TEST
     Dosage: 5 DOSAGE FORM
     Route: 065
  14. HYDROXYZINE [Suspect]
     Active Substance: HYDROXYZINE HYDROCHLORIDE
     Dosage: 10 MILLIGRAM; UNKNOWN
  15. DOXEPINE [Suspect]
     Active Substance: DOXEPIN
     Indication: PRODUCT USED FOR UNKNOWN INDICATION
     Dosage: 10 MILLIGRAM PER MILLILITRE
     Route: 065
  16. DOXEPINE [Suspect]
     Active Substance: DOXEPIN
     Indication: DRUG PROVOCATION TEST
     Dosage: 10 DOSAGE FORM
     Route: 065
  17. HYDROXYZINE [Suspect]
     Active Substance: HYDROXYZINE HYDROCHLORIDE
     Indication: DRUG PROVOCATION TEST
     Dosage: 25 MILLIGRAM; UNKNOWN

REACTIONS (9)
  - Pruritus [Recovered/Resolved]
  - Drug hypersensitivity [Recovered/Resolved]
  - Peripheral swelling [Unknown]
  - Dyspnoea [Recovered/Resolved]
  - Nasal congestion [Unknown]
  - Eosinophilia [Recovered/Resolved]
  - Cough [Recovered/Resolved]
  - Bronchospasm [Unknown]
  - Anaphylactic reaction [Unknown]
